FAERS Safety Report 7989269 (Version 2)
Quarter: 2014Q1

REPORT INFORMATION
  Report Type: Spontaneous
  Country: US (occurrence: US)
  Receive Date: 20110614
  Receipt Date: 20140102
  Transmission Date: 20141002
  Serious: Yes (Hospitalization)
  Sender: FDA-Public Use
  Company Number: US-BAYER-2011-049735

PATIENT
  Age: 19 Year
  Sex: Female

DRUGS (3)
  1. YAZ [Suspect]
     Dosage: UNK
     Route: 048
     Dates: start: 200903, end: 200907
  2. DILAUDID [Concomitant]
  3. VICODIN [Concomitant]

REACTIONS (6)
  - Gallbladder disorder [Unknown]
  - Injury [None]
  - Pain [None]
  - Nausea [Unknown]
  - Abdominal pain [Unknown]
  - Cholecystitis acute [None]
